FAERS Safety Report 6578491-X (Version None)
Quarter: 2010Q1

REPORT INFORMATION
  Report Type: 
  Country: None (occurrence: None)
  Receive Date: 20100211
  Receipt Date: 20100201
  Transmission Date: 20100710
  Serious: Yes (Other)
  Sender: FDA-Public Use
  Company Number: PHEH2010US01717

PATIENT
  Sex: Male

DRUGS (1)
  1. GLEEVEC [Suspect]
     Dosage: 400 MG
     Dates: end: 20100127

REACTIONS (3)
  - ABDOMINAL DISTENSION [None]
  - NEUROPATHY PERIPHERAL [None]
  - SPLENOMEGALY [None]
